FAERS Safety Report 6089511-3 (Version None)
Quarter: 2009Q1

REPORT INFORMATION
  Report Type: 
  Country: None (occurrence: None)
  Receive Date: 20090219
  Receipt Date: 20090219
  Transmission Date: 20090719
  Serious: Yes (Other)
  Sender: FDA-Public Use
  Company Number: None

PATIENT
  Age: 67 Year
  Sex: Female
  Weight: 72.5755 kg

DRUGS (2)
  1. AZITHROMYCIN [Suspect]
     Indication: BRONCHITIS
     Dosage: 50MG 5 DOSES 2 DAY 1, 1 4 DAYS ONLY DAY ONE TAKEN
     Dates: start: 20081201
  2. AZITHROMYCIN [Suspect]
     Indication: COUGH
     Dosage: 50MG 5 DOSES 2 DAY 1, 1 4 DAYS ONLY DAY ONE TAKEN
     Dates: start: 20081201

REACTIONS (3)
  - ABDOMINAL DISCOMFORT [None]
  - DIARRHOEA [None]
  - DYSPEPSIA [None]
